FAERS Safety Report 10514911 (Version 2)
Quarter: 2015Q1

REPORT INFORMATION
  Report Type: Spontaneous
  Country: IT (occurrence: IT)
  Receive Date: 20141013
  Receipt Date: 20150129
  Transmission Date: 20150720
  Serious: Yes (Hospitalization, Other)
  Sender: FDA-Public Use
  Company Number: IT-ABBVIE-14P-083-1294672-00

PATIENT
  Age: 37 Year
  Sex: Male

DRUGS (4)
  1. VALPROATE SOIDUM/VALPROIC ACID (DEPAKIN CHRONO) [Suspect]
     Active Substance: VALPROATE SODIUM
     Indication: OVERDOSE
     Route: 048
     Dates: start: 20140710, end: 20140710
  2. RISPERDAL [Suspect]
     Active Substance: RISPERIDONE
     Indication: OVERDOSE
     Route: 048
     Dates: start: 20140710, end: 20140710
  3. AKINETON [Suspect]
     Active Substance: BIPERIDEN HYDROCHLORIDE
     Indication: OVERDOSE
     Route: 048
     Dates: start: 20140710, end: 20140710
  4. CITALOPRAM [Suspect]
     Active Substance: CITALOPRAM HYDROBROMIDE
     Indication: OVERDOSE
     Route: 048
     Dates: start: 20140710, end: 20140710

REACTIONS (7)
  - Intentional overdose [None]
  - Tachycardia [Recovered/Resolved]
  - Sopor [Recovered/Resolved]
  - Hypotension [Recovered/Resolved]
  - Intentional self-injury [Recovered/Resolved]
  - Toxicity to various agents [Unknown]
  - Overdose [Unknown]

NARRATIVE: CASE EVENT DATE: 20140710
